FAERS Safety Report 18054189 (Version 2)
Quarter: 2020Q3

REPORT INFORMATION
  Report Type: Spontaneous
  Country: US (occurrence: US)
  Receive Date: 20200722
  Receipt Date: 20200723
  Transmission Date: 20201103
  Serious: No
  Sender: FDA-Public Use
  Company Number: US-PFIZER INC-2020278930

PATIENT
  Age: 58 Year
  Sex: Female
  Weight: 99.79 kg

DRUGS (1)
  1. PREMARIN [Suspect]
     Active Substance: ESTROGENS, CONJUGATED
     Indication: VULVOVAGINAL DRYNESS
     Dosage: UNK, 2X/WEEK (0.5 WITH APPLICATOR VAGINALLY TWICE A WEEK)
     Route: 067
     Dates: end: 202006

REACTIONS (1)
  - Weight increased [Recovered/Resolved]
